FAERS Safety Report 25363065 (Version 2)
Quarter: 2025Q3

REPORT INFORMATION
  Report Type: Spontaneous
  Country: US (occurrence: US)
  Receive Date: 20250527
  Receipt Date: 20250810
  Transmission Date: 20251021
  Serious: No
  Sender: ALEXION PHARMACEUTICALS
  Company Number: US-ASTRAZENECA-202505GLO022080US

PATIENT
  Age: 77 Year
  Sex: Female

DRUGS (15)
  1. BUDESONIDE [Suspect]
     Active Substance: BUDESONIDE
     Indication: Asthma
  2. TEZEPELUMAB [Suspect]
     Active Substance: TEZEPELUMAB
     Route: 065
  3. METOPROLOL TARTRATE [Suspect]
     Active Substance: METOPROLOL TARTRATE
     Route: 065
  4. CRESTOR [Suspect]
     Active Substance: ROSUVASTATIN CALCIUM
     Route: 065
  5. ALBUTEROL [Suspect]
     Active Substance: ALBUTEROL
     Route: 065
  6. AIRSUPRA [Suspect]
     Active Substance: ALBUTEROL SULFATE\BUDESONIDE
     Route: 065
  7. FORMOTEROL [Suspect]
     Active Substance: FORMOTEROL
     Route: 065
  8. ALBUTEROL [Suspect]
     Active Substance: ALBUTEROL
     Route: 065
  9. ARFORMOTEROL [Suspect]
     Active Substance: ARFORMOTEROL
     Route: 065
  10. APIXABAN [Concomitant]
     Active Substance: APIXABAN
  11. LORAZEPAM [Concomitant]
     Active Substance: LORAZEPAM
  12. PLAVIX [Concomitant]
     Active Substance: CLOPIDOGREL BISULFATE
  13. FLEXERIL [Concomitant]
     Active Substance: CYCLOBENZAPRINE HYDROCHLORIDE
  14. PROTONIX [Concomitant]
     Active Substance: PANTOPRAZOLE SODIUM
  15. TRELEGY ELLIPTA [Concomitant]
     Active Substance: FLUTICASONE FUROATE\UMECLIDINIUM BROMIDE\VILANTEROL TRIFENATATE

REACTIONS (1)
  - Asthma [Unknown]
